FAERS Safety Report 15697185 (Version 2)
Quarter: 2018Q4

REPORT INFORMATION
  Report Type: Spontaneous
  Country: US (occurrence: US)
  Receive Date: 20181206
  Receipt Date: 20181210
  Transmission Date: 20190205
  Serious: No
  Sender: FDA-Public Use
  Company Number: US-PFIZER INC-2018497312

PATIENT
  Age: 55 Year
  Sex: Female
  Weight: 128.3 kg

DRUGS (7)
  1. TYLENOL OXY [Concomitant]
     Indication: BACK DISORDER
     Dosage: UNK, 4X/DAY
  2. FLECTOR [Suspect]
     Active Substance: DICLOFENAC EPOLAMINE
     Indication: BACK PAIN
     Dosage: 1 DF, SINGLE
     Dates: start: 20181128
  3. INSULIN [Concomitant]
     Active Substance: INSULIN NOS
     Indication: DIABETES MELLITUS
     Dosage: UNK [SHE HAS A BASAL RATE OF 3.00 UNITS EVERY HOUR]
  4. BACLOFEN. [Concomitant]
     Active Substance: BACLOFEN
     Indication: BACK DISORDER
     Dosage: UNK
  5. FLECTOR [Suspect]
     Active Substance: DICLOFENAC EPOLAMINE
     Indication: PAIN IN EXTREMITY
  6. TYLENOL OXY [Concomitant]
     Indication: LIMB DISCOMFORT
  7. FLECTOR [Suspect]
     Active Substance: DICLOFENAC EPOLAMINE
     Indication: MAST CELL ACTIVATION SYNDROME

REACTIONS (2)
  - Somnolence [Unknown]
  - Balance disorder [Not Recovered/Not Resolved]

NARRATIVE: CASE EVENT DATE: 20181128
